FAERS Safety Report 10424709 (Version 2)
Quarter: 2014Q4

REPORT INFORMATION
  Report Type: Spontaneous
  Country: US (occurrence: None)
  Receive Date: 20140725
  Receipt Date: 20141023
  Transmission Date: 20150528
  Serious: No
  Sender: FDA-Public Use
  Company Number: AP356-00741-SPO-US

PATIENT
  Age: 63 Year
  Sex: Female
  Weight: 79.4 kg

DRUGS (3)
  1. SPIRIVA (TIOTROPIUM BROMIDE) [Concomitant]
  2. BELVIQ [Suspect]
     Active Substance: LORCASERIN HYDROCHLORIDE
     Indication: WEIGHT CONTROL
     Dosage: 10 MG, ONCE, ORAL
     Route: 048
     Dates: start: 201405, end: 201405
  3. NORVASC [Concomitant]
     Active Substance: AMLODIPINE BESYLATE

REACTIONS (2)
  - Feeling abnormal [None]
  - Feeling jittery [None]

NARRATIVE: CASE EVENT DATE: 201405
